FAERS Safety Report 9170819 (Version 2)
Quarter: 2013Q2

REPORT INFORMATION
  Report Type: Spontaneous
  Country: PT (occurrence: None)
  Receive Date: 20130312
  Receipt Date: 20130424
  Transmission Date: 20140414
  Serious: Yes (Hospitalization, Disabling, Other)
  Sender: FDA-Public Use
  Company Number: 2013P1002880

PATIENT
  Age: 76 Year
  Sex: Female

DRUGS (1)
  1. AMIODARONE [Suspect]
     Route: 042
     Dates: start: 20130112, end: 20130113

REACTIONS (3)
  - Infusion site phlebitis [None]
  - Incorrect route of drug administration [None]
  - Catheter site infection [None]
